FAERS Safety Report 4322044-0 (Version None)
Quarter: 2004Q1

REPORT INFORMATION
  Report Type: 
  Country: None (occurrence: None)
  Receive Date: 20040319
  Receipt Date: 20040310
  Transmission Date: 20041129
  Serious: Yes (Life-Threatening, Hospitalization)
  Sender: FDA-Public Use
  Company Number: ZONI001344

PATIENT
  Age: 24 Year
  Sex: Female

DRUGS (4)
  1. ZONEGRAN [Suspect]
     Dosage: ORAL
     Route: 048
  2. CHLORAL HYDRATE (CHLORAL HYDRATE) [Suspect]
     Indication: SLEEP DISORDER
  3. TEMAZEPAM [Suspect]
  4. LITHIUM CARBONATE [Concomitant]

REACTIONS (4)
  - CARDIOPULMONARY FAILURE [None]
  - FOREIGN BODY ASPIRATION [None]
  - VENTRICULAR TACHYCARDIA [None]
  - VOMITING [None]
